FAERS Safety Report 21587669 (Version 1)
Quarter: 2022Q4

REPORT INFORMATION
  Report Type: Spontaneous
  Country: CN (occurrence: None)
  Receive Date: 20221114
  Receipt Date: 20221114
  Transmission Date: 20230113
  Serious: Yes (Other)
  Sender: FDA-Public Use
  Company Number: CN-ROCHE-3216545

PATIENT
  Age: 61 Year
  Sex: Male

DRUGS (22)
  1. XELODA [Suspect]
     Active Substance: CAPECITABINE
     Indication: Rectal cancer
     Route: 048
     Dates: start: 201805, end: 201809
  2. XELODA [Suspect]
     Active Substance: CAPECITABINE
     Indication: Metastases to liver
     Dosage: 1.5G IN THE MORNING/1.0 G IN THE EVENING, 1.0 G TWICE PER DAY, BEVACIZUMAB +CAPECITABINE
     Route: 048
     Dates: start: 201910
  3. AVASTIN [Suspect]
     Active Substance: BEVACIZUMAB
     Indication: Rectal cancer
     Dosage: BEVACIZUMAB +MFOLFOX, 300/400MG
     Route: 065
     Dates: start: 201904, end: 201909
  4. AVASTIN [Suspect]
     Active Substance: BEVACIZUMAB
     Indication: Metastases to liver
     Dosage: BEVACIZUMAB +CAPECITABINE, 400/500MG
     Route: 065
     Dates: start: 201910, end: 202005
  5. AVASTIN [Suspect]
     Active Substance: BEVACIZUMAB
     Dosage: BEVACIZUMAB +RALTITREXED , 400/500MG
     Route: 065
     Dates: start: 202006, end: 202008
  6. AVASTIN [Suspect]
     Active Substance: BEVACIZUMAB
     Dosage: BEVACIZUMAB +MFOLFOX, 300/400MG
     Route: 065
     Dates: start: 202008
  7. OXALIPLATIN [Concomitant]
     Active Substance: OXALIPLATIN
     Dates: start: 201805, end: 201809
  8. OXALIPLATIN [Concomitant]
     Active Substance: OXALIPLATIN
     Dosage: OXALIPLATIN+RALTITREXED
     Dates: start: 20190318
  9. OXALIPLATIN [Concomitant]
     Active Substance: OXALIPLATIN
     Dosage: MFOLFOX+BEVACIZUMAB
     Dates: start: 201904, end: 201909
  10. OXALIPLATIN [Concomitant]
     Active Substance: OXALIPLATIN
     Dosage: MFOLFOX+BEVACIZUMAB
     Dates: start: 202008, end: 202010
  11. FRUQUINTINIB [Concomitant]
     Active Substance: FRUQUINTINIB
     Dates: start: 202109
  12. REGORAFENIB [Concomitant]
     Active Substance: REGORAFENIB
     Dates: start: 202106
  13. REGORAFENIB [Concomitant]
     Active Substance: REGORAFENIB
     Dates: start: 202107
  14. FLUOROURACIL [Concomitant]
     Active Substance: FLUOROURACIL
     Dosage: BEVACIZUMAB +MFOLFOX, FLUOROURACIL 0.625 G DAY 1 + FLUOROURACIL 2.0 G DAY 1-2 CONTINUOUS INTRAVENOUS
     Dates: start: 201904, end: 201909
  15. FLUOROURACIL [Concomitant]
     Active Substance: FLUOROURACIL
     Dosage: BEVACIZUMAB +MFOLFOX, FLUOROURACIL 0.625 G DAY 1 + FLUOROURACIL 2.0 G DAY 1-2 CONTINUOUS INTRAVENOUS
     Dates: start: 202008, end: 202010
  16. FLUOROURACIL [Concomitant]
     Active Substance: FLUOROURACIL
     Dosage: MFOLFIRI, FLUOROURACIL 0.625 G DAY 1 + FLUOROURACIL 2.0 G DAY 1-2 CONTINUOUS INTRAVENOUS INJECTION L
     Dates: start: 202010, end: 202105
  17. LEUCOVORIN CALCIUM [Concomitant]
     Active Substance: LEUCOVORIN CALCIUM
     Dosage: BEVACIZUMAB +MFOLFOX
     Dates: start: 201904, end: 201909
  18. LEUCOVORIN CALCIUM [Concomitant]
     Active Substance: LEUCOVORIN CALCIUM
     Dosage: BEVACIZUMAB +MFOLFOX
     Dates: start: 202008, end: 202010
  19. LEUCOVORIN CALCIUM [Concomitant]
     Active Substance: LEUCOVORIN CALCIUM
     Dosage: MFOLFIRI
     Dates: start: 202010, end: 202105
  20. IRINOTECAN [Concomitant]
     Active Substance: IRINOTECAN
     Dosage: MFOLFIRI
     Dates: start: 202010, end: 202105
  21. RALTITREXED [Concomitant]
     Active Substance: RALTITREXED
     Dosage: OXALIPLATIN+RALTITREXED
     Dates: start: 20190318
  22. RALTITREXED [Concomitant]
     Active Substance: RALTITREXED
     Dosage: BEVACIZUMAB +RALTITREXED
     Dates: start: 202006, end: 202008

REACTIONS (5)
  - Myelosuppression [Unknown]
  - Gastrointestinal disorder [Unknown]
  - Oral disorder [Unknown]
  - Palmar-plantar erythrodysaesthesia syndrome [Unknown]
  - Drug resistance [Unknown]
